FAERS Safety Report 20491561 (Version 7)
Quarter: 2022Q3

REPORT INFORMATION
  Report Type: Other
  Country: IN (occurrence: None)
  Receive Date: 20220218
  Receipt Date: 20220812
  Transmission Date: 20221027
  Serious: Yes (Death, Other)
  Sender: FDA-Public Use
  Company Number: IN-ROCHE-3024731

PATIENT
  Age: 69 Year
  Sex: Male

DRUGS (2)
  1. TECENTRIQ [Suspect]
     Active Substance: ATEZOLIZUMAB
     Indication: Non-small cell lung cancer metastatic
     Route: 042
     Dates: start: 20211214
  2. TECENTRIQ [Suspect]
     Active Substance: ATEZOLIZUMAB
     Indication: Lung neoplasm malignant

REACTIONS (5)
  - Peripheral swelling [Unknown]
  - Cough [Unknown]
  - Foaming at mouth [Fatal]
  - Hypotension [Fatal]
  - Pneumonia [Fatal]

NARRATIVE: CASE EVENT DATE: 20220623
